FAERS Safety Report 21972420 (Version 1)
Quarter: 2023Q1

REPORT INFORMATION
  Report Type: Spontaneous
  Country: CA (occurrence: CA)
  Receive Date: 20230209
  Receipt Date: 20230209
  Transmission Date: 20230417
  Serious: Yes (Other)
  Sender: FDA-Public Use
  Company Number: CA-SA-2023SA042335

PATIENT
  Age: 72 Year
  Sex: Female

DRUGS (2)
  1. DUPILUMAB [Suspect]
     Active Substance: DUPILUMAB
     Indication: Dermatitis atopic
     Dosage: 600 MG
     Route: 058
  2. DUPILUMAB [Suspect]
     Active Substance: DUPILUMAB
     Dosage: 300 MG, QOW
     Route: 058

REACTIONS (14)
  - Drug eruption [Recovered/Resolved]
  - Lichenoid keratosis [Recovered/Resolved]
  - Granuloma skin [Recovered/Resolved]
  - Drug hypersensitivity [Recovered/Resolved]
  - Dermatitis exfoliative generalised [Recovered/Resolved]
  - Mucosal inflammation [Recovered/Resolved]
  - Dermatitis [Recovered/Resolved]
  - Papule [Recovered/Resolved]
  - Skin plaque [Recovered/Resolved]
  - Skin induration [Recovered/Resolved]
  - Acanthosis [Recovered/Resolved]
  - Parakeratosis [Recovered/Resolved]
  - Skin lesion [Recovered/Resolved]
  - Dysplasia [Recovered/Resolved]
